FAERS Safety Report 18044639 (Version 1)
Quarter: 2020Q3

REPORT INFORMATION
  Report Type: Spontaneous
  Country: US (occurrence: US)
  Receive Date: 20200720
  Receipt Date: 20200720
  Transmission Date: 20201103
  Serious: Yes (Hospitalization, Other)
  Sender: FDA-Public Use
  Company Number: US-SA-2020SA073277

PATIENT

DRUGS (13)
  1. FAMOTIDINE. [Concomitant]
     Active Substance: FAMOTIDINE
     Dosage: 1 DF, HS
     Route: 048
     Dates: start: 202007
  2. HUMALOG [Concomitant]
     Active Substance: INSULIN LISPRO
     Dosage: UNK UNK, Q4D
     Dates: start: 2020
  3. ALBUTEROL [SALBUTAMOL SULFATE] [Concomitant]
     Active Substance: ALBUTEROL SULFATE
     Dosage: 2 DF, PRN
     Dates: start: 202007
  4. LEVALBUTEROL [LEVOSALBUTAMOL] [Concomitant]
     Active Substance: LEVALBUTEROL
     Dosage: 1 ML, Q8H
     Route: 055
     Dates: start: 202007
  5. PREDNISONE. [Concomitant]
     Active Substance: PREDNISONE
     Dosage: 4 DF, QD AND TAPER AS DIRECTED
     Route: 048
     Dates: start: 202007
  6. VITAMIN D2 [Concomitant]
     Active Substance: ERGOCALCIFEROL
     Dosage: 1 MG, BIW, TUESDAY AND THURSDAY
     Route: 048
     Dates: start: 202007
  7. NOVOLOG [Concomitant]
     Active Substance: INSULIN ASPART
     Dosage: 60 U VIA PUMP
     Dates: start: 202007
  8. HUMALOG [Concomitant]
     Active Substance: INSULIN LISPRO
     Dosage: 20 U, Q3D
     Dates: start: 2020
  9. DUPIXENT [Suspect]
     Active Substance: DUPILUMAB
     Indication: ASTHMA
     Dosage: 300 MG/2ML, QOW
     Route: 058
     Dates: start: 20191107
  10. OMEPRAZOLE. [Concomitant]
     Active Substance: OMEPRAZOLE
     Dosage: 1 DF, BID
     Route: 048
     Dates: start: 202007
  11. ALBUTEROL [SALBUTAMOL SULFATE] [Concomitant]
     Active Substance: ALBUTEROL SULFATE
     Dosage: 2 DF, Q4H
     Dates: start: 202007
  12. NYSTATIN. [Concomitant]
     Active Substance: NYSTATIN
     Dosage: 4 ML, Q4D
     Route: 048
     Dates: start: 202007
  13. LOVENOX [Concomitant]
     Active Substance: ENOXAPARIN SODIUM
     Indication: THROMBOSIS PROPHYLAXIS
     Dosage: UNK
     Dates: start: 202007

REACTIONS (31)
  - Cushing^s syndrome [Unknown]
  - Productive cough [Recovering/Resolving]
  - Sinus tachycardia [Unknown]
  - White blood cell count increased [Unknown]
  - Glomerular filtration rate decreased [Unknown]
  - Lymphocyte count decreased [Unknown]
  - Breath sounds abnormal [Unknown]
  - Elliptocytosis [Unknown]
  - Blood urea increased [Unknown]
  - Mean platelet volume increased [Unknown]
  - Polychromasia [Unknown]
  - Acute kidney injury [Recovered/Resolved]
  - Dyspnoea [Recovering/Resolving]
  - Red blood cell count decreased [Unknown]
  - Monocyte count increased [Unknown]
  - Protein total decreased [Unknown]
  - Anisocytosis [Unknown]
  - Asthma [Recovering/Resolving]
  - Pneumonia [Recovered/Resolved]
  - Lung opacity [Recovered/Resolved]
  - Respiratory distress [Recovering/Resolving]
  - Blood pressure systolic increased [Unknown]
  - Haemoglobin decreased [Unknown]
  - Neutrophil count increased [Unknown]
  - Pneumonia viral [Recovered/Resolved]
  - Wheezing [Recovering/Resolving]
  - Poikilocytosis [Unknown]
  - Blood glucose increased [Unknown]
  - Red blood cell morphology abnormal [Unknown]
  - Mean cell haemoglobin concentration decreased [Unknown]
  - Rhonchi [Unknown]

NARRATIVE: CASE EVENT DATE: 202006
